FAERS Safety Report 4431923-5 (Version None)
Quarter: 2004Q3

REPORT INFORMATION
  Report Type: 
  Country: None (occurrence: None)
  Receive Date: 20040818
  Receipt Date: 20040730
  Transmission Date: 20050211
  Serious: Yes (Other)
  Sender: FDA-Public Use
  Company Number: USA040774108

PATIENT
  Age: 75 Year
  Sex: Female
  Weight: 91 kg

DRUGS (1)
  1. HUMALOG [Suspect]
     Dosage: 32 U DAY
     Dates: start: 19960101

REACTIONS (7)
  - ABASIA [None]
  - FALL [None]
  - MEMORY IMPAIRMENT [None]
  - NERVE INJURY [None]
  - SPEECH DISORDER [None]
  - SPINAL CORD DISORDER [None]
  - WEIGHT FLUCTUATION [None]
